FAERS Safety Report 23141044 (Version 14)
Quarter: 2024Q3

REPORT INFORMATION
  Report Type: Spontaneous
  Country: CA (occurrence: CA)
  Receive Date: 20231103
  Receipt Date: 20240822
  Transmission Date: 20241016
  Serious: Yes (Hospitalization, Other)
  Sender: CELLTRION
  Company Number: CA-CELLTRION INC.-2023CA014105

PATIENT

DRUGS (25)
  1. INFLECTRA [Suspect]
     Active Substance: INFLIXIMAB-DYYB
     Indication: Inflammatory bowel disease
     Dosage: 5 MG/KG, EVERY 8 WEEKS
     Route: 042
     Dates: start: 20230825
  2. INFLECTRA [Suspect]
     Active Substance: INFLIXIMAB-DYYB
     Indication: Crohn^s disease
     Dosage: 400 MG, AFTER 2 WEEKS (EVERY 8 WEEKS)
     Route: 042
     Dates: start: 20230908
  3. INFLECTRA [Suspect]
     Active Substance: INFLIXIMAB-DYYB
     Dosage: 400 MG, AFTER 2 WEEKS (EVERY 8 WEEKS)
     Route: 042
     Dates: start: 20230908
  4. INFLECTRA [Suspect]
     Active Substance: INFLIXIMAB-DYYB
     Dosage: 400 MG, WEEK 6 (EVERY 8 WEEKS)
     Route: 042
     Dates: start: 20231003
  5. INFLECTRA [Suspect]
     Active Substance: INFLIXIMAB-DYYB
     Dosage: 415 MG (5MG/KG) AFTER 8 WEEKS AND 1 DAY
     Route: 042
     Dates: start: 20231129
  6. INFLECTRA [Suspect]
     Active Substance: INFLIXIMAB-DYYB
     Dosage: 830 MG (10 MG/KG), EVERY 4 WEEKS
     Route: 042
     Dates: start: 20231227
  7. INFLECTRA [Suspect]
     Active Substance: INFLIXIMAB-DYYB
     Dosage: 825 MG (10 MG/KG), EVERY 4 WEEKS
     Route: 042
     Dates: start: 20240124
  8. INFLECTRA [Suspect]
     Active Substance: INFLIXIMAB-DYYB
     Dosage: 810 MG (10 MG/KG), AFTER 3 WEEKS AND 6 DAYS, PRESCRIBED EVERY 4 WEEKS
     Route: 042
     Dates: start: 20240220
  9. INFLECTRA [Suspect]
     Active Substance: INFLIXIMAB-DYYB
     Dosage: 810 MG (10 MG/KG), EVERY 4 WEEKS
     Route: 042
     Dates: start: 20240319
  10. INFLECTRA [Suspect]
     Active Substance: INFLIXIMAB-DYYB
     Dosage: 770 MG (10 MG/KG), EVERY 4 WEEKS
     Route: 042
     Dates: start: 20240416
  11. INFLECTRA [Suspect]
     Active Substance: INFLIXIMAB-DYYB
     Dosage: 10 MG/KG, EVERY 4 WEEK
     Route: 042
     Dates: start: 20240416
  12. INFLECTRA [Suspect]
     Active Substance: INFLIXIMAB-DYYB
     Dosage: 10 MG/KG (765 MG), AFTER 4 WEEKS 1 DAYS (EVERY 4 WEEKS)
     Route: 042
     Dates: start: 20240515
  13. INFLECTRA [Suspect]
     Active Substance: INFLIXIMAB-DYYB
     Dosage: 10 MG/KG (750 MG), AFTER 5 WEEKS (EVERY 4 WEEKS)
     Route: 042
     Dates: start: 20240619
  14. INFLECTRA [Suspect]
     Active Substance: INFLIXIMAB-DYYB
     Dosage: 10 MG/KG, EVERY 4 WEEK
     Route: 042
     Dates: start: 20240717
  15. INFLECTRA [Suspect]
     Active Substance: INFLIXIMAB-DYYB
     Dosage: 10 MG/KG, EVERY 4 WEEK
     Route: 042
     Dates: start: 20240717, end: 20240717
  16. ASPIRIN [Concomitant]
     Active Substance: ASPIRIN
     Dosage: 81 MG, 1X/DAY
     Route: 048
  17. ASPIRIN [Concomitant]
     Active Substance: ASPIRIN
     Dosage: 81 MG FREQUENCY: UNKNOWN
     Route: 065
  18. PREDNISONE [Concomitant]
     Active Substance: PREDNISONE
     Dosage: 40 MG, 1X/DAY
     Route: 048
  19. PREDNISONE [Concomitant]
     Active Substance: PREDNISONE
     Dosage: 50 MG, 1X/DAY TAPERED DOSE
     Route: 065
  20. PREDNISONE [Concomitant]
     Active Substance: PREDNISONE
     Dosage: 30 MG, DAILY, AND A TAPER OVER 6 WEEKS
     Route: 048
  21. RAMIPRIL [Concomitant]
     Active Substance: RAMIPRIL
     Dosage: 1 DF
  22. VITALUX-S [Concomitant]
     Dosage: 1 DF
  23. PANTOPRAZOLE SODIUM [Concomitant]
     Active Substance: PANTOPRAZOLE SODIUM
     Dosage: 40 MG, 1X/DAY
     Route: 048
  24. PANTOPRAZOLE SODIUM [Concomitant]
     Active Substance: PANTOPRAZOLE SODIUM
     Dosage: 40 MG FREQUENCY: UNKNOWN
     Route: 065
  25. TAMSULOSIN [Concomitant]
     Active Substance: TAMSULOSIN
     Dosage: UNK

REACTIONS (14)
  - Intestinal obstruction [Recovered/Resolved]
  - Condition aggravated [Not Recovered/Not Resolved]
  - Barrett^s oesophagus [Unknown]
  - Neovascular age-related macular degeneration [Recovering/Resolving]
  - Prostate cancer [Recovered/Resolved]
  - Drug level decreased [Unknown]
  - Intestinal metaplasia [Unknown]
  - Diverticulum intestinal [Unknown]
  - Arthralgia [Recovered/Resolved]
  - Blood pressure increased [Unknown]
  - Pruritus [Recovered/Resolved]
  - Vomiting [Recovered/Resolved]
  - Off label use [Unknown]
  - Inappropriate schedule of product administration [Unknown]

NARRATIVE: CASE EVENT DATE: 20230101
